FAERS Safety Report 6305012-9 (Version None)
Quarter: 2009Q3

REPORT INFORMATION
  Report Type: 
  Country: None (occurrence: None)
  Receive Date: 20090811
  Receipt Date: 20090728
  Transmission Date: 20100115
  Serious: Yes (Other)
  Sender: FDA-Public Use
  Company Number: US-GENENTECH-288172

PATIENT
  Age: 89 Year
  Sex: Male

DRUGS (2)
  1. LUCENTIS [Suspect]
     Indication: MACULAR DEGENERATION
     Dosage: UNK
     Route: 031
  2. METHOTREXATE [Concomitant]
     Indication: DRUG USE FOR UNKNOWN INDICATION

REACTIONS (5)
  - DETACHMENT OF RETINAL PIGMENT EPITHELIUM [None]
  - RETINAL EXUDATES [None]
  - RETINAL HAEMORRHAGE [None]
  - RETINAL OEDEMA [None]
  - SUBRETINAL FIBROSIS [None]
